FAERS Safety Report 9438627 (Version 2)
Quarter: 2014Q2

REPORT INFORMATION
  Report Type: Spontaneous
  Country: US (occurrence: US)
  Receive Date: 20130802
  Receipt Date: 20140515
  Transmission Date: 20141212
  Serious: Yes (Hospitalization)
  Sender: FDA-Public Use
  Company Number: US-GLAXOSMITHKLINE-B0912575A

PATIENT
  Age: 53 Year
  Sex: Male

DRUGS (2)
  1. AVANDIA [Suspect]
     Indication: DIABETES MELLITUS
     Dosage: 4MG TWICE PER DAY
     Route: 048
     Dates: start: 20060401, end: 20090101
  2. AVANDAMET [Suspect]
     Indication: DIABETES MELLITUS
     Route: 065
     Dates: end: 200704

REACTIONS (5)
  - Cardiac failure congestive [Not Recovered/Not Resolved]
  - Pulmonary hypertension [Unknown]
  - Heart rate increased [Unknown]
  - Joint swelling [Unknown]
  - Vasoconstriction [Unknown]
